FAERS Safety Report 5684126-0 (Version None)
Quarter: 2008Q1

REPORT INFORMATION
  Report Type: 
  Country: None (occurrence: None)
  Receive Date: 20080327
  Receipt Date: 20080327
  Transmission Date: 20080703
  Serious: No
  Sender: FDA-Public Use
  Company Number: None

PATIENT
  Age: 58 Year
  Sex: Female
  Weight: 95.2554 kg

DRUGS (2)
  1. ZOMETA [Suspect]
     Indication: MULTIPLE MYELOMA
     Dosage: MONTHLY IV DRIP
     Route: 041
     Dates: start: 20020601, end: 20021001
  2. ZOMETA [Suspect]
     Indication: MULTIPLE MYELOMA
     Dosage: QUARTERLY IV DRIP
     Route: 041
     Dates: start: 20021201, end: 20061201

REACTIONS (1)
  - OSTEONECROSIS [None]
